FAERS Safety Report 25204209 (Version 1)
Quarter: 2025Q2

REPORT INFORMATION
  Report Type: Spontaneous
  Country: CN (occurrence: CN)
  Receive Date: 20250416
  Receipt Date: 20250416
  Transmission Date: 20250717
  Serious: Yes (Other)
  Sender: Kenvue
  Company Number: CN-KENVUE-20250402798

PATIENT

DRUGS (1)
  1. BUDESONIDE [Suspect]
     Active Substance: BUDESONIDE
     Indication: Product used for unknown indication
     Route: 065

REACTIONS (11)
  - Dystonia [Unknown]
  - Product administered to patient of inappropriate age [Unknown]
  - Tremor [Unknown]
  - Hypertonia [Unknown]
  - Muscle contractions involuntary [Unknown]
  - Dyskinesia [Unknown]
  - Hyperreflexia [Unknown]
  - Excessive exercise [Unknown]
  - Ataxia [Unknown]
  - Muscular weakness [Unknown]
  - Hypotonia [Unknown]
